FAERS Safety Report 18184672 (Version 1)
Quarter: 2020Q3

REPORT INFORMATION
  Report Type: Spontaneous
  Country: CA (occurrence: CA)
  Receive Date: 20200824
  Receipt Date: 20200824
  Transmission Date: 20201103
  Serious: Yes (Hospitalization)
  Sender: FDA-Public Use
  Company Number: CA-TEVA-2020-CA-1817579

PATIENT
  Age: 39 Year
  Sex: Female

DRUGS (3)
  1. ESTROGENS [Concomitant]
     Active Substance: ESTROGENS
  2. FLUCONAZOLE. [Suspect]
     Active Substance: FLUCONAZOLE
     Indication: FUNGAL INFECTION
     Dosage: 300 MILLIGRAM DAILY;
  3. PROGESTERONE. [Concomitant]
     Active Substance: PROGESTERONE

REACTIONS (2)
  - Blood triglycerides increased [Unknown]
  - Pancreatitis [Unknown]
